FAERS Safety Report 8545164 (Version 2)
Quarter: 2012Q4

REPORT INFORMATION
  Report Type: 
  Country: US (occurrence: US)
  Receive Date: 20120503
  Receipt Date: 20121125
  Transmission Date: 20130627
  Serious: Yes (Other)
  Sender: FDA-Public Use
  Company Number: US-BAYER-2012-040920

PATIENT
  Age: 25 Year
  Sex: Female

DRUGS (2)
  1. MIRENA [Suspect]
     Dosage: 20 mcg/24hr, CONT
     Route: 015
     Dates: start: 201202, end: 201204
  2. MIRENA [Suspect]
     Dosage: 20 mcg/24hr, CONT
     Route: 015
     Dates: end: 20120820

REACTIONS (7)
  - Thyroid disorder [None]
  - Helicobacter infection [None]
  - Pelvic infection [None]
  - Pelvic pain [None]
  - Genital haemorrhage [None]
  - Weight decreased [None]
  - Menstruation delayed [None]
